FAERS Safety Report 9329433 (Version 1)
Quarter: 2013Q2

REPORT INFORMATION
  Report Type: Spontaneous
  Country: US (occurrence: US)
  Receive Date: 20130604
  Receipt Date: 20130604
  Transmission Date: 20140414
  Serious: Yes (Other)
  Sender: FDA-Public Use
  Company Number: US-SANOFI-AVENTIS-2012SA092907

PATIENT
  Age: 42 Year
  Sex: Female
  Weight: 81.81 kg

DRUGS (9)
  1. LANTUS SOLOSTAR [Suspect]
     Indication: TYPE 1 DIABETES MELLITUS
     Dosage: DOSE:50 UNIT(S)
     Route: 058
     Dates: start: 20100714
  2. LANTUS SOLOSTAR [Suspect]
     Indication: TYPE 2 DIABETES MELLITUS
     Dosage: DOSE:50 UNIT(S)
     Route: 058
     Dates: start: 20100714
  3. LANTUS SOLOSTAR [Suspect]
     Indication: TYPE 1 DIABETES MELLITUS
     Dosage: DOSE:50 UNIT(S)
     Route: 058
     Dates: start: 20100714
  4. LANTUS SOLOSTAR [Suspect]
     Indication: TYPE 2 DIABETES MELLITUS
     Dosage: DOSE:50 UNIT(S)
     Route: 058
     Dates: start: 20100714
  5. SOLOSTAR [Suspect]
     Indication: TYPE 1 DIABETES MELLITUS
     Dates: start: 2009
  6. SOLOSTAR [Suspect]
     Indication: TYPE 2 DIABETES MELLITUS
     Dates: start: 2009
  7. SOLOSTAR [Suspect]
     Indication: TYPE 1 DIABETES MELLITUS
     Dates: start: 2009
  8. SOLOSTAR [Suspect]
     Indication: TYPE 2 DIABETES MELLITUS
     Dates: start: 2009
  9. NOVOLOG [Concomitant]
     Indication: DIABETES MELLITUS
     Dosage: DOSE:32 UNIT(S)
     Dates: start: 2005

REACTIONS (2)
  - Bronchitis [Not Recovered/Not Resolved]
  - Cough [Not Recovered/Not Resolved]
